FAERS Safety Report 9164430 (Version 1)
Quarter: 2013Q1

REPORT INFORMATION
  Report Type: Spontaneous
  Country: IT (occurrence: None)
  Receive Date: 20130226
  Receipt Date: 20130226
  Transmission Date: 20140127
  Serious: Yes (Hospitalization)
  Sender: FDA-Public Use
  Company Number: 1600122

PATIENT
  Age: 49 Year
  Sex: Female

DRUGS (6)
  1. CARBOPLATIN [Suspect]
     Indication: MALIGNANT PERITONEAL NEOPLASM
     Dosage: 280 MG MILLIGRAM(S), 1 WEEK, INTRAVENOUS DRIP
     Route: 041
     Dates: start: 20121115, end: 20121213
  2. ONDANSETRON [Concomitant]
  3. SOLDESAM [Concomitant]
  4. TRIMETON [Concomitant]
  5. TAXOL [Concomitant]
  6. PANTORC [Concomitant]

REACTIONS (6)
  - Headache [None]
  - Hypersensitivity [None]
  - Vomiting [None]
  - Abdominal pain [None]
  - Hypotension [None]
  - Infusion related reaction [None]
